FAERS Safety Report 6131672-1 (Version None)
Quarter: 2009Q1

REPORT INFORMATION
  Report Type: 
  Country: None (occurrence: None)
  Receive Date: 20090325
  Receipt Date: 20090126
  Transmission Date: 20090719
  Serious: Yes (Other)
  Sender: FDA-Public Use
  Company Number: US-BRISTOL-MYERS SQUIBB COMPANY-14483333

PATIENT
  Age: 85 Year
  Sex: Female

DRUGS (5)
  1. ERBITUX [Suspect]
  2. DILANTIN [Concomitant]
  3. CITRUCEL [Concomitant]
  4. VITAMIN D [Concomitant]
  5. MEBARAL [Concomitant]

REACTIONS (2)
  - DYSPNOEA [None]
  - HYPOTENSION [None]
